FAERS Safety Report 4719091-3 (Version None)
Quarter: 2005Q3

REPORT INFORMATION
  Report Type: 
  Country: None (occurrence: None)
  Receive Date: 20050720
  Receipt Date: 20050325
  Transmission Date: 20060218
  Serious: Yes (Death, Life-Threatening)
  Sender: FDA-Public Use
  Company Number: US-MERCK-0503USA04748

PATIENT
  Age: 70 Year
  Sex: Male

DRUGS (3)
  1. VIOXX [Suspect]
     Indication: ARTHRITIS
     Route: 048
     Dates: start: 20000101, end: 20040913
  2. VIOXX [Suspect]
     Indication: BACK PAIN
     Route: 048
     Dates: start: 20000101, end: 20040913
  3. [THERAPY UNSPECIFIED] [Concomitant]
     Route: 065

REACTIONS (7)
  - BALANCE DISORDER [None]
  - DIZZINESS [None]
  - ESSENTIAL TREMOR [None]
  - FALL [None]
  - HEAD DEFORMITY [None]
  - HEAD INJURY [None]
  - VERTEBRAL INJURY [None]
